FAERS Safety Report 19849824 (Version 1)
Quarter: 2021Q3

REPORT INFORMATION
  Report Type: Spontaneous
  Country: DE (occurrence: DE)
  Receive Date: 20210918
  Receipt Date: 20210918
  Transmission Date: 20211014
  Serious: Yes (Hospitalization)
  Sender: FDA-Public Use
  Company Number: DE-ACCORD-238832

PATIENT
  Age: 63 Year
  Sex: Female

DRUGS (12)
  1. APREPITANT. [Concomitant]
     Active Substance: APREPITANT
     Indication: CHEMOTHERAPY SIDE EFFECT PROPHYLAXIS
     Route: 048
     Dates: start: 20210309
  2. GRANISETRON [Concomitant]
     Active Substance: GRANISETRON
     Indication: CHEMOTHERAPY SIDE EFFECT PROPHYLAXIS
     Route: 042
     Dates: start: 20210309
  3. DEXAMETHASONE. [Concomitant]
     Active Substance: DEXAMETHASONE
     Indication: CHEMOTHERAPY SIDE EFFECT PROPHYLAXIS
     Route: 042
     Dates: start: 20210309
  4. ASTRAZENECA COVID?19 VACCINE [Suspect]
     Active Substance: AZD-1222
     Indication: COVID-19 PROPHYLAXIS
     Route: 030
     Dates: start: 20210308, end: 20210308
  5. EFEROX [Concomitant]
     Active Substance: LEVOTHYROXINE SODIUM
     Indication: THYROID OPERATION
     Route: 048
     Dates: start: 19940101
  6. FAMOTIDINE. [Concomitant]
     Active Substance: FAMOTIDINE
     Indication: CHEMOTHERAPY SIDE EFFECT PROPHYLAXIS
     Route: 048
     Dates: start: 20210309
  7. OLAPARIB. [Suspect]
     Active Substance: OLAPARIB
     Indication: OVARIAN CANCER
     Route: 048
  8. DIMETINDENE [Concomitant]
     Active Substance: DIMETHINDENE
     Indication: CHEMOTHERAPY SIDE EFFECT PROPHYLAXIS
     Route: 042
     Dates: start: 20210309
  9. CARBOPLATIN. [Suspect]
     Active Substance: CARBOPLATIN
     Indication: OVARIAN CANCER
     Dates: start: 20210309, end: 20210309
  10. DURVALUMAB. [Suspect]
     Active Substance: DURVALUMAB
     Indication: OVARIAN CANCER
     Route: 042
     Dates: start: 20210330, end: 20210330
  11. PACLITAXEL. [Concomitant]
     Active Substance: PACLITAXEL
     Indication: OVARIAN CANCER
     Dates: start: 20210331, end: 20210331
  12. BEVACIZUMAB. [Concomitant]
     Active Substance: BEVACIZUMAB
     Indication: OVARIAN CANCER
     Dates: start: 20210330, end: 20210330

REACTIONS (6)
  - Constipation [Recovered/Resolved]
  - Blood calcium decreased [Recovered/Resolved]
  - Vaccination complication [Recovered/Resolved]
  - Arthralgia [Recovered/Resolved]
  - General physical health deterioration [Recovered/Resolved]
  - Dizziness [Recovered/Resolved]

NARRATIVE: CASE EVENT DATE: 20210312
